FAERS Safety Report 4728106-8 (Version None)
Quarter: 2005Q3

REPORT INFORMATION
  Report Type: 
  Country: None (occurrence: None)
  Receive Date: 20050729
  Receipt Date: 20050511
  Transmission Date: 20060218
  Serious: Yes (Hospitalization)
  Sender: FDA-Public Use
  Company Number: PHBS2005CA06738

PATIENT
  Age: 41 Year
  Sex: Male

DRUGS (11)
  1. RISPERIDONE [Concomitant]
     Dosage: 3 MG, BID
     Dates: start: 20050302, end: 20050531
  2. TERBINAFINE HCL [Suspect]
     Indication: NAIL TINEA
     Dosage: 250 MG, QD
     Route: 048
     Dates: start: 20050317, end: 20050503
  3. MONOCOR [Concomitant]
     Dosage: 5 MG, QD
  4. DALMANE [Concomitant]
     Dosage: 15 MG, QHS
  5. LIPITOR [Concomitant]
     Dosage: 20 MG, QD
  6. COLACE [Concomitant]
     Dosage: UNK, PRN
  7. SENOKOT [Concomitant]
     Dosage: UNK, PRN
  8. COGENTIN [Concomitant]
     Dosage: 3 MG/D
  9. HALDOL [Concomitant]
     Dosage: 15 MG/D
  10. ASPIRIN [Concomitant]
     Dosage: 81 MG, QD
  11. ATIVAN [Concomitant]
     Dosage: 1-2 MG, PRN

REACTIONS (9)
  - ANAEMIA [None]
  - HAEMATOCRIT DECREASED [None]
  - HAEMOGLOBIN DECREASED [None]
  - LEUKOPENIA [None]
  - PANCYTOPENIA [None]
  - PLATELET COUNT DECREASED [None]
  - RED BLOOD CELL COUNT DECREASED [None]
  - THROMBOCYTOPENIA [None]
  - WHITE BLOOD CELL COUNT DECREASED [None]
